FAERS Safety Report 22316118 (Version 1)
Quarter: 2023Q2

REPORT INFORMATION
  Report Type: Spontaneous
  Country: US (occurrence: US)
  Receive Date: 20230512
  Receipt Date: 20230512
  Transmission Date: 20230721
  Serious: No
  Sender: FDA-Public Use
  Company Number: US-ELI_LILLY_AND_COMPANY-US202305003426

PATIENT
  Sex: Female

DRUGS (1)
  1. TALTZ [Suspect]
     Active Substance: IXEKIZUMAB
     Indication: Product used for unknown indication
     Dosage: UNK, UNKNOWN
     Route: 065

REACTIONS (7)
  - Vision blurred [Unknown]
  - Pruritus [Unknown]
  - Gastrointestinal sounds abnormal [Unknown]
  - Joint warmth [Unknown]
  - Paraesthesia [Unknown]
  - Hypoaesthesia [Unknown]
  - Conjunctivitis [Unknown]
